FAERS Safety Report 23865454 (Version 5)
Quarter: 2024Q4

REPORT INFORMATION
  Report Type: Spontaneous
  Country: CA (occurrence: CA)
  Receive Date: 20240517
  Receipt Date: 20241205
  Transmission Date: 20250114
  Serious: Yes (Life-Threatening, Hospitalization, Other)
  Sender: SANDOZ
  Company Number: CA-002147023-NVSC2024CA102406

PATIENT
  Sex: Male

DRUGS (11)
  1. ADVIL [Suspect]
     Active Substance: IBUPROFEN
     Indication: Acute respiratory failure
     Dosage: 1600 MG, QD
     Route: 065
  2. DICLOFENAC [Suspect]
     Active Substance: DICLOFENAC
     Indication: Pain
     Dosage: UNK
     Route: 065
  3. DILAUDID [Suspect]
     Active Substance: HYDROMORPHONE HYDROCHLORIDE
     Indication: Pain
     Dosage: 30 MG, QD
     Route: 065
  4. FENTANYL [Suspect]
     Active Substance: FENTANYL
     Indication: Pain
     Dosage: UNK
     Route: 065
  5. GABAPENTIN [Suspect]
     Active Substance: GABAPENTIN
     Indication: Acute respiratory failure
     Dosage: 3600 MG, QD
     Route: 065
  6. KETAMINE [Suspect]
     Active Substance: KETAMINE
     Indication: Product used for unknown indication
     Dosage: 40 MG, QD
     Route: 065
  7. LIDOCAINE [Suspect]
     Active Substance: LIDOCAINE
     Indication: Pain
     Dosage: UNK
     Route: 061
  8. NABILONE [Suspect]
     Active Substance: NABILONE
     Indication: Pain
     Dosage: 6 MG, QD
     Route: 065
  9. OLANZAPINE [Suspect]
     Active Substance: OLANZAPINE
     Indication: Pain
     Dosage: 2.5 MG, QD
     Route: 065
  10. PANADOL [Suspect]
     Active Substance: ACETAMINOPHEN
     Indication: Pain
     Dosage: 3900 MG, QD
     Route: 065
  11. ACETAMINOPHEN\OXYCODONE HYDROCHLORIDE [Suspect]
     Active Substance: ACETAMINOPHEN\OXYCODONE HYDROCHLORIDE
     Indication: Pain
     Dosage: 3900 MG, QD
     Route: 065

REACTIONS (1)
  - Therapy non-responder [Unknown]
